FAERS Safety Report 10528039 (Version 2)
Quarter: 2014Q4

REPORT INFORMATION
  Report Type: Spontaneous
  Country: US (occurrence: US)
  Receive Date: 20141020
  Receipt Date: 20141126
  Transmission Date: 20150528
  Serious: Yes (Other)
  Sender: FDA-Public Use
  Company Number: US-GLAXOSMITHKLINE-US2014GSK007372

PATIENT
  Sex: Male

DRUGS (4)
  1. VENTOLIN [Suspect]
     Active Substance: ALBUTEROL SULFATE
     Indication: ASTHMA
     Dosage: 1 PUFF(S), PRN
  2. UNSPECIFIED INHALER [Concomitant]
     Active Substance: UNSPECIFIED INGREDIENT
  3. UNSPECIFIED MEDICATION [Concomitant]
     Active Substance: UNSPECIFIED INGREDIENT
  4. VENTOLIN [Suspect]
     Active Substance: ALBUTEROL SULFATE
     Indication: CHRONIC OBSTRUCTIVE PULMONARY DISEASE

REACTIONS (5)
  - Myocardial infarction [Unknown]
  - Dissociation [Unknown]
  - Apparent death [Unknown]
  - Product quality issue [Unknown]
  - Dyspnoea [Unknown]
